FAERS Safety Report 7320706-4 (Version None)
Quarter: 2011Q1

REPORT INFORMATION
  Report Type: 
  Country: None (occurrence: None)
  Receive Date: 20110216
  Receipt Date: 20110126
  Transmission Date: 20110831
  Serious: No
  Sender: FDA-Public Use
  Company Number: 2011-00039

PATIENT
  Age: 52 Year
  Sex: Male
  Weight: 90.7194 kg

DRUGS (2)
  1. ZICAM EXTREME CONGESTION RELIEF [Suspect]
     Dosage: BID X 3 DAYS
     Dates: start: 20110124, end: 20110126
  2. NAPROXEN [Concomitant]

REACTIONS (2)
  - ANOSMIA [None]
  - AGEUSIA [None]
